FAERS Safety Report 23146097 (Version 2)
Quarter: 2024Q1

REPORT INFORMATION
  Report Type: Spontaneous
  Country: US (occurrence: US)
  Receive Date: 20231104
  Receipt Date: 20240119
  Transmission Date: 20240410
  Serious: Yes (Other)
  Sender: FDA-Public Use
  Company Number: US-AUROBINDO-AUR-APL-2023-066823

PATIENT
  Sex: Male

DRUGS (1)
  1. AZELASTINE HYDROCHLORIDE [Suspect]
     Active Substance: AZELASTINE HYDROCHLORIDE
     Indication: Nasal discomfort
     Dosage: 2 DOSAGE FORM, TWO TIMES A DAY (TWO SPARYS IN EACH NOSTRIL TWICE A DAY)
     Route: 065

REACTIONS (4)
  - Device loosening [Unknown]
  - Illness [Recovered/Resolved]
  - Taste disorder [Recovered/Resolved]
  - Product container seal issue [Unknown]
